FAERS Safety Report 10157615 (Version 2)
Quarter: 2014Q2

REPORT INFORMATION
  Report Type: Spontaneous
  Country: US (occurrence: US)
  Receive Date: 20140507
  Receipt Date: 20140527
  Transmission Date: 20141212
  Serious: Yes (Hospitalization, Other)
  Sender: FDA-Public Use
  Company Number: US-PFIZER INC-2014124333

PATIENT
  Age: 75 Year
  Sex: Male
  Weight: 105 kg

DRUGS (20)
  1. GENOTROPIN MQ [Suspect]
     Indication: HYPOPITUITARISM
     Dosage: 0.4 MG, EVERY DAY
     Route: 058
  2. GABAPENTIN [Concomitant]
     Dosage: 800 MG, UNK
  3. LUMIGAN [Concomitant]
     Dosage: 5ML 0.01 %
     Route: 047
  4. SYNTHROID [Concomitant]
     Dosage: 175 UG, UNK
  5. CITALOPRAM HYDROBROMIDE [Concomitant]
     Dosage: 20 MG, UNK
  6. HYDROCORTISONE [Concomitant]
     Dosage: 20 MG, UNK
  7. PRAMIPEXOLE DIHYDROCHLORIDE [Concomitant]
     Dosage: 0.25 MG, UNK
  8. SIMVASTATIN [Concomitant]
     Dosage: 20 MG, UNK
  9. ASPIRIN (E.C.) [Concomitant]
     Dosage: 81 MG, UNK
  10. CENTRUM SILVER [Concomitant]
     Dosage: UNK
  11. CHROMIUM PICOLINATE [Concomitant]
     Dosage: 200 UG, UNK
  12. DDAVP [Concomitant]
     Dosage: 0.1 MG, UNK
  13. FIRST TESTOSTERONE MC [Concomitant]
     Dosage: 2 %, UNK
  14. OXYCODONE HYDROCHLORIDE [Concomitant]
     Dosage: 10 MG, UNK
  15. PLAVIX [Concomitant]
     Dosage: 300 MG, UNK
  16. PREDNISOLONE [Concomitant]
     Dosage: 15MG/5
  17. PYRIDOSTIGMINE BROMIDE [Concomitant]
     Dosage: 60 MG, UNK
  18. SULINDAC [Concomitant]
     Dosage: 200 MG, UNK
  19. XALATAN [Concomitant]
     Dosage: 0.005 %, UNK
  20. CITALOPRAM HYDROBROMIDE [Concomitant]
     Dosage: 10 MG, UNK

REACTIONS (2)
  - Pneumonia [Recovering/Resolving]
  - Cerebrovascular accident [Recovering/Resolving]
